FAERS Safety Report 8036819-8 (Version None)
Quarter: 2012Q1

REPORT INFORMATION
  Report Type: 
  Country: None (occurrence: None)
  Receive Date: 20120106
  Receipt Date: 20111230
  Transmission Date: 20120608
  Serious: Yes (Hospitalization)
  Sender: FDA-Public Use
  Company Number: 2012MA000056

PATIENT
  Age: 14 Year
  Sex: Female

DRUGS (1)
  1. FEVERALL [Suspect]
     Indication: SUICIDE ATTEMPT
     Dosage: 11 G;;PO
     Route: 054
     Dates: start: 20111123, end: 20111123

REACTIONS (4)
  - SUICIDE ATTEMPT [None]
  - HEPATIC FAILURE [None]
  - HEPATITIS ACUTE [None]
  - OVERDOSE [None]
